FAERS Safety Report 18809592 (Version 2)
Quarter: 2024Q2

REPORT INFORMATION
  Report Type: Report from Study
  Country: CA (occurrence: CA)
  Receive Date: 20210129
  Receipt Date: 20240411
  Transmission Date: 20240715
  Serious: Yes (Hospitalization, Other)
  Sender: FDA-Public Use
  Company Number: CA-MYLANLABS-2021M1005389

PATIENT
  Sex: Female

DRUGS (6)
  1. METHOTREXATE [Suspect]
     Active Substance: METHOTREXATE
     Indication: Still^s disease
     Dosage: UNK
     Route: 065
  2. TOCILIZUMAB [Suspect]
     Active Substance: TOCILIZUMAB
     Indication: Still^s disease
     Dosage: UNK
     Route: 065
  3. ANAKINRA [Suspect]
     Active Substance: ANAKINRA
     Indication: Still^s disease
     Dosage: UNK
     Route: 065
  4. CANAKINUMAB [Suspect]
     Active Substance: CANAKINUMAB
     Indication: Still^s disease
     Dosage: UNK
     Route: 065
  5. CYCLOSPORINE [Suspect]
     Active Substance: CYCLOSPORINE
     Indication: Still^s disease
     Dosage: UNK
     Route: 065
  6. TOFACITINIB [Suspect]
     Active Substance: TOFACITINIB
     Indication: Still^s disease
     Dosage: UNK
     Route: 065

REACTIONS (13)
  - Osteoporosis [Unknown]
  - Spinal fracture [Unknown]
  - Spinal stenosis [Unknown]
  - Epidural lipomatosis [Unknown]
  - Spinal disorder [Unknown]
  - Drug ineffective for unapproved indication [Unknown]
  - Hypertensive cardiomyopathy [Unknown]
  - Cushingoid [Recovered/Resolved]
  - Hepatic steatosis [Recovered/Resolved]
  - Growth retardation [Recovering/Resolving]
  - Short stature [Unknown]
  - Obstructive sleep apnoea syndrome [Recovered/Resolved]
  - Off label use [Unknown]
